FAERS Safety Report 11719354 (Version 1)
Quarter: 2015Q4

REPORT INFORMATION
  Report Type: Spontaneous
  Country: US (occurrence: US)
  Receive Date: 20151110
  Receipt Date: 20151110
  Transmission Date: 20160304
  Serious: Yes (Other)
  Sender: FDA-Public Use
  Company Number: US-MYLANLABS-2015M1033198

PATIENT

DRUGS (1)
  1. EPIPEN [Suspect]
     Active Substance: EPINEPHRINE
     Indication: HYPERSENSITIVITY
     Dosage: UNK UNK, ONCE
     Dates: start: 20150909, end: 20150909

REACTIONS (1)
  - Device failure [Recovered/Resolved]

NARRATIVE: CASE EVENT DATE: 20150909
